FAERS Safety Report 12825503 (Version 6)
Quarter: 2020Q3

REPORT INFORMATION
  Report Type: Report from Study
  Country: ES (occurrence: ES)
  Receive Date: 20161007
  Receipt Date: 20181119
  Transmission Date: 20201104
  Serious: Yes (Hospitalization)
  Sender: FDA-Public Use
  Company Number: ES-JNJFOC-20160928100

PATIENT
  Age: 80 Year
  Sex: Male
  Weight: 97 kg

DRUGS (5)
  1. DARATUMUMB [Suspect]
     Active Substance: DARATUMUMAB
     Route: 042
  2. LENALIDOMIDE [Suspect]
     Active Substance: LENALIDOMIDE
     Indication: PLASMA CELL MYELOMA
     Route: 048
     Dates: start: 20150119, end: 20160922
  3. DARATUMUMB [Suspect]
     Active Substance: DARATUMUMAB
     Indication: PLASMA CELL MYELOMA
     Route: 042
     Dates: start: 20150119, end: 20160915
  4. DEXAMETHASONE. [Concomitant]
     Active Substance: DEXAMETHASONE
     Indication: PLASMA CELL MYELOMA
     Route: 042
     Dates: start: 20150119, end: 20160922
  5. LENALIDOMIDE [Suspect]
     Active Substance: LENALIDOMIDE
     Indication: PLASMA CELL MYELOMA
     Route: 048
     Dates: start: 20161110

REACTIONS (2)
  - Electrolyte imbalance [Recovered/Resolved]
  - Arthritis infective [Recovered/Resolved]

NARRATIVE: CASE EVENT DATE: 20160923
